FAERS Safety Report 19688621 (Version 1)
Quarter: 2021Q3

REPORT INFORMATION
  Report Type: Spontaneous
  Country: US (occurrence: US)
  Receive Date: 20210812
  Receipt Date: 20210812
  Transmission Date: 20211014
  Serious: No
  Sender: FDA-Public Use
  Company Number: US-COLGATE PALMOLIVE COMPANY-20210200272

PATIENT
  Sex: Male

DRUGS (1)
  1. COLGATE TOTAL WHITENING [Suspect]
     Active Substance: SODIUM FLUORIDE\TRICLOSAN
     Dosage: USED ONCE
     Dates: start: 202101, end: 202101

REACTIONS (2)
  - Product physical consistency issue [Unknown]
  - Gingival discomfort [Recovered/Resolved]

NARRATIVE: CASE EVENT DATE: 202101
